FAERS Safety Report 10447407 (Version 3)
Quarter: 2014Q3

REPORT INFORMATION
  Report Type: Spontaneous
  Country: US (occurrence: US)
  Receive Date: 20140911
  Receipt Date: 20140916
  Transmission Date: 20150326
  Serious: Yes (Other)
  Sender: FDA-Public Use
  Company Number: US-BEH-2013035460

PATIENT
  Age: 51 Year
  Sex: Female
  Weight: 45 kg

DRUGS (20)
  1. ZEMAIRA [Suspect]
     Active Substance: .ALPHA.1-PROTEINASE INHIBITOR HUMAN
     Indication: ASTHMA
     Dates: start: 20120927
  2. KEFLEX [Concomitant]
     Active Substance: CEPHALEXIN
  3. SODIUM CHLORIDE. [Concomitant]
     Active Substance: SODIUM CHLORIDE
  4. ALBUTEROL. [Concomitant]
     Active Substance: ALBUTEROL
  5. ZEMAIRA [Suspect]
     Active Substance: .ALPHA.1-PROTEINASE INHIBITOR HUMAN
     Indication: ALPHA-1 ANTI-TRYPSIN DEFICIENCY
     Route: 042
  6. NABUMETONE. [Concomitant]
     Active Substance: NABUMETONE
  7. ALPRAZOLAM. [Concomitant]
     Active Substance: ALPRAZOLAM
  8. DIPHENHYDRAMINE [Concomitant]
     Active Substance: DIPHENHYDRAMINE
  9. LIDOCAINE/PRILOCAINE [Concomitant]
  10. EPIPEN [Concomitant]
     Active Substance: EPINEPHRINE
  11. ZEMAIRA [Suspect]
     Active Substance: .ALPHA.1-PROTEINASE INHIBITOR HUMAN
     Dosage: MAX RATE 0.08 ML/KG/MIN (3.7 ML/MIN)
     Route: 042
  12. VICODIN [Concomitant]
     Active Substance: ACETAMINOPHEN\HYDROCODONE BITARTRATE
  13. NICOTINE. [Concomitant]
     Active Substance: NICOTINE
  14. IPRATROPIUM BR [Concomitant]
  15. PENICILLIN [Concomitant]
     Active Substance: PENICILLIN
  16. ZEMAIRA [Suspect]
     Active Substance: .ALPHA.1-PROTEINASE INHIBITOR HUMAN
     Dosage: 3.7 ML PER MINUTE; 1 G VIAL
     Route: 042
  17. NYSTATIN. [Concomitant]
     Active Substance: NYSTATIN
  18. AMITRIPTYLINE [Concomitant]
     Active Substance: AMITRIPTYLINE
  19. IBUPROFEN. [Concomitant]
     Active Substance: IBUPROFEN
  20. PROAIR HFA [Concomitant]
     Active Substance: ALBUTEROL SULFATE

REACTIONS (26)
  - Ear pain [Unknown]
  - Depression [Unknown]
  - Alopecia [Unknown]
  - Malaise [Unknown]
  - Paraesthesia [Unknown]
  - Oral mucosal blistering [Unknown]
  - Oral mucosal blistering [Unknown]
  - Tooth infection [Unknown]
  - Back pain [Unknown]
  - Depressed mood [Unknown]
  - Sleep disorder [Unknown]
  - Swollen tongue [Unknown]
  - Impaired healing [Unknown]
  - Dysgeusia [Unknown]
  - Increased appetite [Unknown]
  - Mouth swelling [Unknown]
  - Tooth loss [Unknown]
  - Productive cough [Unknown]
  - Viral infection [Recovering/Resolving]
  - Mouth swelling [Unknown]
  - Gingivitis [Unknown]
  - Throat cancer [Unknown]
  - Dehydration [Unknown]
  - Tooth disorder [Unknown]
  - Insomnia [Unknown]
  - Toothache [Unknown]

NARRATIVE: CASE EVENT DATE: 2013
